FAERS Safety Report 8307418-5 (Version None)
Quarter: 2012Q2

REPORT INFORMATION
  Report Type: 
  Country: None (occurrence: None)
  Receive Date: 20120424
  Receipt Date: 20120413
  Transmission Date: 20120825
  Serious: Yes (Other)
  Sender: FDA-Public Use
  Company Number: PHHY2012ES034038

PATIENT
  Age: 14 Year
  Sex: Female

DRUGS (1)
  1. CARBAMAZEPINE [Suspect]
     Dosage: UNK

REACTIONS (4)
  - LIVER INJURY [None]
  - EOSINOPHILIA [None]
  - RASH [None]
  - PYREXIA [None]
